FAERS Safety Report 18511243 (Version 1)
Quarter: 2020Q4

REPORT INFORMATION
  Report Type: Spontaneous
  Country: US (occurrence: US)
  Receive Date: 20201117
  Receipt Date: 20201117
  Transmission Date: 20210114
  Serious: Yes (Hospitalization)
  Sender: FDA-Public Use
  Company Number: None

PATIENT
  Sex: Female

DRUGS (1)
  1. ZEJULA [Suspect]
     Active Substance: NIRAPARIB
     Indication: OVARIAN CANCER
     Dosage: ?          OTHER FREQUENCY:300MGX2, 200X1;?
     Route: 048
     Dates: start: 20180718

REACTIONS (3)
  - Malignant neoplasm progression [None]
  - Tumour marker increased [None]
  - Dyspnoea [None]
